FAERS Safety Report 6924355-9 (Version None)
Quarter: 2010Q3

REPORT INFORMATION
  Report Type: 
  Country: None (occurrence: None)
  Receive Date: 20100811
  Receipt Date: 20100811
  Transmission Date: 20110219
  Serious: Yes (Other)
  Sender: FDA-Public Use
  Company Number: None

PATIENT
  Sex: Male
  Weight: 65.4541 kg

DRUGS (1)
  1. BACTRIM DS [Suspect]
     Indication: SKIN INFECTION
     Dosage: 1 PO BID X 10 DAYS
     Route: 048
     Dates: start: 20080229, end: 20080303

REACTIONS (1)
  - LYMPHADENOPATHY [None]
